FAERS Safety Report 25478593 (Version 1)
Quarter: 2025Q2

REPORT INFORMATION
  Report Type: Report from Study
  Country: GB (occurrence: GB)
  Receive Date: 20250625
  Receipt Date: 20250625
  Transmission Date: 20250717
  Serious: Yes (Hospitalization, Other)
  Sender: ABBVIE
  Company Number: GB-ABBVIE-6339312

PATIENT
  Age: 56 Year
  Sex: Female

DRUGS (1)
  1. SKYRIZI [Suspect]
     Active Substance: RISANKIZUMAB-RZAA
     Indication: Crohn^s disease
     Route: 058

REACTIONS (9)
  - Intestinal obstruction [Unknown]
  - Intestinal stenosis [Unknown]
  - Visual impairment [Unknown]
  - Headache [Unknown]
  - Fatigue [Unknown]
  - Ear infection [Recovered/Resolved]
  - Tympanic membrane perforation [Unknown]
  - Psoriasis [Recovering/Resolving]
  - Therapeutic response unexpected [Unknown]

NARRATIVE: CASE EVENT DATE: 20250101
